FAERS Safety Report 18332138 (Version 4)
Quarter: 2021Q2

REPORT INFORMATION
  Report Type: Report from Study
  Country: US (occurrence: US)
  Receive Date: 20200930
  Receipt Date: 20210412
  Transmission Date: 20210717
  Serious: No
  Sender: FDA-Public Use
  Company Number: US-KARYOPHARM-2020KPT001115

PATIENT
  Age: 55 Year
  Sex: Male

DRUGS (4)
  1. ROLAPITANT [Concomitant]
     Active Substance: ROLAPITANT
     Indication: ANTIEMETIC SUPPORTIVE CARE
     Dosage: 180 MG, 1X/2 WEEKS
     Route: 048
  2. SELINEXOR [Suspect]
     Active Substance: SELINEXOR
     Indication: PRIMARY AMYLOIDOSIS
     Dosage: 60 MG, WEEKLY, ORAL
     Route: 048
     Dates: start: 20200716, end: 20201013
  3. ONDANSETRON [Concomitant]
     Active Substance: ONDANSETRON
     Indication: ANTIEMETIC SUPPORTIVE CARE
     Dosage: 8 MG, WEEKLY
     Route: 048
  4. DECADRON [Concomitant]
     Active Substance: DEXAMETHASONE
     Indication: PRIMARY AMYLOIDOSIS
     Dosage: 12 MG, WEEKLY
     Route: 048
     Dates: start: 20200716

REACTIONS (4)
  - Thrombocytopenia [Not Recovered/Not Resolved]
  - Diarrhoea [Recovering/Resolving]
  - Fatigue [Not Recovered/Not Resolved]
  - Primary amyloidosis [Not Recovered/Not Resolved]

NARRATIVE: CASE EVENT DATE: 20200806
